FAERS Safety Report 10284866 (Version 1)
Quarter: 2014Q3

REPORT INFORMATION
  Report Type: Spontaneous
  Country: FR (occurrence: FR)
  Receive Date: 20140708
  Receipt Date: 20140708
  Transmission Date: 20150326
  Serious: Yes (Hospitalization)
  Sender: FDA-Public Use
  Company Number: FR-TEVA-492904ISR

PATIENT
  Age: 78 Year
  Sex: Male

DRUGS (14)
  1. AMIODARONE TEVA 200MG [Suspect]
     Active Substance: AMIODARONE
     Indication: ARRHYTHMIA SUPRAVENTRICULAR
     Dosage: 1 DOSAGE FORMS DAILY;
     Route: 048
     Dates: start: 20140506, end: 20140603
  2. BISOPROLOL TEVA 2.5 MG [Suspect]
     Active Substance: BISOPROLOL
     Dosage: 2.5 MILLIGRAM DAILY;
     Route: 048
     Dates: start: 20140502, end: 20140603
  3. ATARAX [Concomitant]
     Active Substance: HYDROXYZINE\HYDROXYZINE HYDROCHLORIDE
  4. VENLAFAXINE [Concomitant]
     Active Substance: VENLAFAXINE HYDROCHLORIDE
     Dates: start: 201403
  5. FORTIMEL [Concomitant]
     Active Substance: DIETARY SUPPLEMENT
  6. COUMADINE [Suspect]
     Active Substance: WARFARIN SODIUM
     Indication: ARRHYTHMIA SUPRAVENTRICULAR
     Route: 048
     Dates: start: 20140513, end: 20140603
  7. OSSOPAN [Concomitant]
  8. MAXIDEX [Suspect]
     Active Substance: DEXAMETHASONE
     Indication: CATARACT OPERATION
     Route: 047
     Dates: start: 20140523, end: 20140601
  9. CREON [Concomitant]
     Active Substance: PANCRELIPASE AMYLASE\PANCRELIPASE LIPASE\PANCRELIPASE PROTEASE
  10. INDOCOLLYRE [Concomitant]
     Active Substance: INDOMETHACIN
     Dosage: ONGOING
     Dates: start: 20140528
  11. ISOPHANE INSULIN [Concomitant]
     Active Substance: INSULIN NOS
  12. NOVORAPID [Concomitant]
     Active Substance: INSULIN ASPART
  13. ESOMEPRAZOLE TEVA 40MG [Suspect]
     Active Substance: ESOMEPRAZOLE
     Dosage: 40 MILLIGRAM DAILY;
     Route: 048
     Dates: start: 20140530, end: 20140530
  14. ALTOCEL [Concomitant]

REACTIONS (5)
  - Stomatitis [Recovered/Resolved]
  - Rash maculo-papular [Recovered/Resolved]
  - Genital erythema [Recovered/Resolved]
  - Cheilitis [Recovered/Resolved]
  - Perianal erythema [Recovered/Resolved]

NARRATIVE: CASE EVENT DATE: 20140531
